FAERS Safety Report 16881231 (Version 1)
Quarter: 2019Q4

REPORT INFORMATION
  Report Type: Spontaneous
  Country: DK (occurrence: DK)
  Receive Date: 20191003
  Receipt Date: 20191003
  Transmission Date: 20200122
  Serious: Yes (Other)
  Sender: FDA-Public Use
  Company Number: DK-OTSUKA-2019_033916

PATIENT
  Age: 13 Year
  Sex: Male
  Weight: 59 kg

DRUGS (1)
  1. ABILIFY [Suspect]
     Active Substance: ARIPIPRAZOLE
     Indication: TIC
     Dosage: STYRKE: 5 MG
     Route: 048
     Dates: start: 20180809, end: 20190830

REACTIONS (2)
  - Product use in unapproved indication [Unknown]
  - Electrocardiogram ST segment elevation [Unknown]

NARRATIVE: CASE EVENT DATE: 20180809
